FAERS Safety Report 8438282-1 (Version None)
Quarter: 2012Q2

REPORT INFORMATION
  Report Type: 
  Country: None (occurrence: None)
  Receive Date: 20120614
  Receipt Date: 20120604
  Transmission Date: 20120825
  Serious: Yes (Life-Threatening)
  Sender: FDA-Public Use
  Company Number: DE-BAYER-2012-056008

PATIENT

DRUGS (5)
  1. ACETYLSALICYLIC ACID SRT [Suspect]
     Indication: PROPHYLAXIS
     Dosage: DOSE: 100MG
     Route: 048
     Dates: start: 20070315
  2. ACETYLSALICYLIC ACID SRT [Suspect]
     Indication: ESSENTIAL THROMBOCYTHAEMIA
     Dosage: DOSE: 50MG
     Route: 048
     Dates: start: 20070315
  3. ANAGRELIDE HCL [Suspect]
     Indication: ESSENTIAL THROMBOCYTHAEMIA
     Dosage: DAILY DOSE 1 MG
     Route: 048
     Dates: start: 20070315
  4. ANAGRELIDE HCL [Suspect]
     Dosage: UNK
     Route: 048
     Dates: start: 20090429
  5. FENOFIBRATE [Concomitant]
     Indication: HYPERCHOLESTEROLAEMIA
     Dosage: DAILY DOSE 250 MG
     Route: 048
     Dates: start: 20040101

REACTIONS (6)
  - ARTERIAL THROMBOSIS [None]
  - MYOCARDIAL INFARCTION [None]
  - EMBOLISM ARTERIAL [None]
  - EMBOLISM [None]
  - MYOCARDIAL ISCHAEMIA [None]
  - THROMBOSIS [None]
